FAERS Safety Report 8447370 (Version 2)
Quarter: 2013Q2

REPORT INFORMATION
  Report Type: Report from Study
  Country: JP (occurrence: JP)
  Receive Date: 20120308
  Receipt Date: 20130419
  Transmission Date: 20140414
  Serious: Yes (Life-Threatening, Hospitalization)
  Sender: FDA-Public Use
  Company Number: JP-AMGEN-JPNCT2010011763

PATIENT
  Age: 60 Year
  Sex: Male
  Weight: 59 kg

DRUGS (6)
  1. PANITUMUMAB [Suspect]
     Indication: COLORECTAL CANCER
     Dosage: 6 MG/KG, Q2WK
     Route: 041
     Dates: start: 20101018, end: 20101018
  2. PANITUMUMAB [Suspect]
     Dosage: 6 MG/KG, Q2WK
     Dates: start: 20101122, end: 20101206
  3. OXINORM [Concomitant]
     Indication: CANCER PAIN
     Dosage: 2.5 MG, BID
     Route: 048
     Dates: start: 20090202
  4. OXYCONTIN [Concomitant]
     Indication: CANCER PAIN
     Dosage: 5 MG, BID
     Route: 048
     Dates: start: 20090209
  5. RINDERON-V [Concomitant]
     Dosage: UNK
     Route: 062
     Dates: start: 20101018, end: 20101219
  6. WHITE PETROLEUM [Concomitant]
     Dosage: UNK
     Route: 062
     Dates: start: 20101018, end: 20101219

REACTIONS (3)
  - Interstitial lung disease [Recovering/Resolving]
  - Dermatitis acneiform [Recovering/Resolving]
  - Hypocalcaemia [Recovered/Resolved]
